FAERS Safety Report 9594003 (Version 1)
Quarter: 2013Q3

REPORT INFORMATION
  Report Type: Spontaneous
  Country: US (occurrence: None)
  Receive Date: 20130930
  Receipt Date: 20130930
  Transmission Date: 20140515
  Serious: No
  Sender: FDA-Public Use
  Company Number: 1000047913

PATIENT
  Age: 47 Year
  Sex: Male

DRUGS (5)
  1. LINZESS (LINACLOTIDE) (145 MICROGRAM, CAPSULES) [Suspect]
     Indication: IRRITABLE BOWEL SYNDROME
     Dosage: 145 MCG, 1 IN 1 D
     Route: 048
     Dates: start: 201304
  2. LINZESS (LINACLOTIDE) (145 MICROGRAM, CAPSULES) [Suspect]
     Indication: CONSTIPATION
     Dosage: 145 MCG, 1 IN 1 D
     Route: 048
     Dates: start: 201304
  3. LEVOTHYROXINE [Concomitant]
  4. HYDROCHLOROTHIAZIDE [Concomitant]
  5. SERTRALINE [Concomitant]

REACTIONS (3)
  - Abdominal pain [None]
  - Dyspepsia [None]
  - Abdominal distension [None]
